FAERS Safety Report 16149940 (Version 1)
Quarter: 2019Q2

REPORT INFORMATION
  Report Type: Spontaneous
  Country: JP (occurrence: JP)
  Receive Date: 20190403
  Receipt Date: 20190403
  Transmission Date: 20190711
  Serious: Yes (Life-Threatening)
  Sender: FDA-Public Use
  Company Number: JP-EISAI MEDICAL RESEARCH-EC-2019-051692

PATIENT
  Age: 78 Year
  Sex: Female
  Weight: 35 kg

DRUGS (3)
  1. LENVIMA [Suspect]
     Active Substance: LENVATINIB
     Indication: THYROID CANCER
     Route: 048
     Dates: start: 20190112, end: 201901
  2. LENVIMA [Suspect]
     Active Substance: LENVATINIB
     Route: 048
     Dates: start: 201901, end: 20190131
  3. LENVIMA [Suspect]
     Active Substance: LENVATINIB
     Route: 048
     Dates: start: 20190208, end: 2019

REACTIONS (4)
  - Haematuria [Recovering/Resolving]
  - Portal vein thrombosis [Recovered/Resolved]
  - Odynophagia [Recovering/Resolving]
  - Portal vein occlusion [Recovered/Resolved]

NARRATIVE: CASE EVENT DATE: 20190123
